FAERS Safety Report 17279739 (Version 1)
Quarter: 2020Q1

REPORT INFORMATION
  Report Type: Spontaneous
  Country: SE (occurrence: SE)
  Receive Date: 20200116
  Receipt Date: 20200116
  Transmission Date: 20200409
  Serious: Yes (Hospitalization)
  Sender: FDA-Public Use
  Company Number: SE-MYLANLABS-2020M1004478

PATIENT
  Sex: Female

DRUGS (2)
  1. PROPAVAN [Suspect]
     Active Substance: PROPIOMAZINE
     Indication: PRODUCT USED FOR UNKNOWN INDICATION
     Dosage: 40 ST 25 MG 1 TOTAL
     Route: 048
     Dates: start: 20180522, end: 20180522
  2. LERGIGAN (PROMETHAZINE HYDROCHLORIDE) [Suspect]
     Active Substance: PROMETHAZINE HYDROCHLORIDE
     Indication: PRODUCT USED FOR UNKNOWN INDICATION
     Dosage: OKLARA M?NGDER 1 TOTAL
     Route: 048
     Dates: start: 20180522, end: 20180522

REACTIONS (6)
  - Intentional overdose [Unknown]
  - Intentional self-injury [Unknown]
  - Unresponsive to stimuli [Unknown]
  - Tachycardia [Unknown]
  - Primitive reflex test positive [Unknown]
  - Agitation [Unknown]

NARRATIVE: CASE EVENT DATE: 20180522
